FAERS Safety Report 16346910 (Version 1)
Quarter: 2019Q2

REPORT INFORMATION
  Report Type: Spontaneous
  Country: CN (occurrence: CN)
  Receive Date: 20190523
  Receipt Date: 20190523
  Transmission Date: 20190711
  Serious: Yes (Other)
  Sender: FDA-Public Use
  Company Number: CN-BAYER-2019-095291

PATIENT
  Age: 78 Year
  Sex: Male
  Weight: 45 kg

DRUGS (2)
  1. STIVARGA [Suspect]
     Active Substance: REGORAFENIB
     Indication: RECTAL CANCER
     Dosage: 80 MG
     Route: 048
     Dates: start: 20190419, end: 20190422
  2. STIVARGA [Suspect]
     Active Substance: REGORAFENIB
     Indication: CHEMOTHERAPY

REACTIONS (9)
  - Hepatic mass [None]
  - Gastrointestinal disorder [Recovering/Resolving]
  - Abdominal pain [Recovering/Resolving]
  - Hepatic haemorrhage [None]
  - Nausea [Recovering/Resolving]
  - Vomiting [Recovering/Resolving]
  - Hypokalaemia [Recovered/Resolved]
  - Abdominal discomfort [Recovering/Resolving]
  - Off label use [None]

NARRATIVE: CASE EVENT DATE: 20190419
